FAERS Safety Report 5269775-6 (Version None)
Quarter: 2007Q1

REPORT INFORMATION
  Report Type: 
  Country: None (occurrence: None)
  Receive Date: 20061213
  Receipt Date: 20030815
  Transmission Date: 20070707
  Serious: Yes (Other)
  Sender: FDA-Public Use
  Company Number: 2003UW10360

PATIENT
  Sex: Female

DRUGS (3)
  1. IRESSA [Suspect]
     Dosage: 250 MG QD PO
     Route: 048
     Dates: start: 20030721
  2. ATENOLOL [Concomitant]
  3. NEXIUM [Concomitant]

REACTIONS (1)
  - EPISTAXIS [None]
